FAERS Safety Report 10678438 (Version 1)
Quarter: 2014Q4

REPORT INFORMATION
  Report Type: Spontaneous
  Country: IN (occurrence: IN)
  Receive Date: 20141229
  Receipt Date: 20141229
  Transmission Date: 20150529
  Serious: Yes (Other)
  Sender: FDA-Public Use
  Company Number: IN-BAYER-2014-188252

PATIENT
  Age: 23 Year
  Sex: Female

DRUGS (2)
  1. PRAZOSIN [Concomitant]
     Active Substance: PRAZOSIN
     Indication: GESTATIONAL HYPERTENSION
     Dosage: 5 MG, BID
  2. NIFEDIPINE. [Suspect]
     Active Substance: NIFEDIPINE
     Indication: GESTATIONAL HYPERTENSION
     Dosage: 5 MG, BID

REACTIONS (3)
  - Caesarean section [None]
  - Retinal detachment [Recovered/Resolved]
  - Exposure during pregnancy [None]
